FAERS Safety Report 18005965 (Version 2)
Quarter: 2020Q3

REPORT INFORMATION
  Report Type: Spontaneous
  Country: US (occurrence: US)
  Receive Date: 20200709
  Receipt Date: 20200724
  Transmission Date: 20201103
  Serious: No
  Sender: FDA-Public Use
  Company Number: US-009507513-2007USA000507

PATIENT
  Sex: Male

DRUGS (2)
  1. DULERA [Suspect]
     Active Substance: FORMOTEROL FUMARATE DIHYDRATE\MOMETASONE FUROATE
     Dosage: 4 TIMES A DAY, SECOND INHALER
     Dates: start: 20200609, end: 202006
  2. DULERA [Suspect]
     Active Substance: FORMOTEROL FUMARATE DIHYDRATE\MOMETASONE FUROATE
     Dosage: 4 TIMES A DAY, FIRST INHALER
     Dates: start: 2020, end: 2020

REACTIONS (8)
  - Poor quality device used [Unknown]
  - Product dose omission issue [Unknown]
  - Poor quality device used [Unknown]
  - Device malfunction [Unknown]
  - Incorrect dose administered [Unknown]
  - Device malfunction [Unknown]
  - Circumstance or information capable of leading to medication error [Unknown]
  - No adverse event [Unknown]

NARRATIVE: CASE EVENT DATE: 2020
